FAERS Safety Report 14226683 (Version 2)
Quarter: 2017Q4

REPORT INFORMATION
  Report Type: Spontaneous
  Country: US (occurrence: US)
  Receive Date: 20171127
  Receipt Date: 20171218
  Transmission Date: 20180321
  Serious: No
  Sender: FDA-Public Use
  Company Number: US-SUNOVION-2017SUN004969

PATIENT
  Age: 23 Year
  Sex: Male
  Weight: 66.67 kg

DRUGS (2)
  1. APTIOM [Suspect]
     Active Substance: ESLICARBAZEPINE ACETATE
     Indication: SEIZURE
     Dosage: 800 MG, QD
     Route: 048
     Dates: start: 20171010
  2. APTIOM [Suspect]
     Active Substance: ESLICARBAZEPINE ACETATE
     Dosage: 400 MG, QD
     Route: 048
     Dates: start: 201710, end: 201710

REACTIONS (2)
  - Dysuria [Unknown]
  - Pollakiuria [Unknown]

NARRATIVE: CASE EVENT DATE: 201710
